FAERS Safety Report 17198492 (Version 5)
Quarter: 2020Q1

REPORT INFORMATION
  Report Type: Report from Study
  Country: None (occurrence: TR)
  Receive Date: 20191225
  Receipt Date: 20200227
  Transmission Date: 20200409
  Serious: Yes (Hospitalization)
  Sender: FDA-Public Use
  Company Number: TR-ABBVIE-19K-161-3193027-00

PATIENT
  Age: 83 Year
  Sex: Male

DRUGS (3)
  1. DUODOPA [Suspect]
     Active Substance: CARBIDOPA\LEVODOPA
     Dosage: MORNING DOSE(ML):7.00 CONTINUES DOSE(ML):3.70 EXTRA DOSE(ML):1.00
     Route: 050
     Dates: start: 20200225
  2. CORASPIN [Concomitant]
     Active Substance: ASPIRIN
     Indication: PROPHYLAXIS
     Route: 048
     Dates: end: 20191210
  3. DUODOPA [Suspect]
     Active Substance: CARBIDOPA\LEVODOPA
     Indication: PARKINSON^S DISEASE
     Dosage: MORNING DOSE(ML):7.00 CONTINUES DOSE(ML):3.70 EXTRA DOSE(ML):1.00
     Route: 050
     Dates: start: 20171123, end: 20191217

REACTIONS (3)
  - Fall [Recovered/Resolved]
  - Fistula [Not Recovered/Not Resolved]
  - Embedded device [Recovered/Resolved]

NARRATIVE: CASE EVENT DATE: 20191210
